FAERS Safety Report 6961620-3 (Version None)
Quarter: 2010Q3

REPORT INFORMATION
  Report Type: 
  Country: None (occurrence: None)
  Receive Date: 20100901
  Receipt Date: 20100824
  Transmission Date: 20110219
  Serious: No
  Sender: FDA-Public Use
  Company Number: US-PFIZER INC-2010106457

PATIENT

DRUGS (1)
  1. DETROL [Suspect]
     Indication: URINARY INCONTINENCE
     Dosage: 2 MG, 2X/DAY

REACTIONS (1)
  - DYSPEPSIA [None]
